FAERS Safety Report 18030331 (Version 1)
Quarter: 2020Q3

REPORT INFORMATION
  Report Type: Spontaneous
  Country: US (occurrence: US)
  Receive Date: 20200715
  Receipt Date: 20200715
  Transmission Date: 20201103
  Serious: No
  Sender: FDA-Public Use
  Company Number: US-OPTINOSE US, INC-2020OPT000297

PATIENT
  Age: 62 Year
  Sex: Male
  Weight: 83.08 kg

DRUGS (6)
  1. XHANCE [Suspect]
     Active Substance: FLUTICASONE PROPIONATE
     Indication: SINUS CONGESTION
     Route: 045
     Dates: start: 20200305, end: 20200403
  2. ASPIRIN. [Concomitant]
     Active Substance: ASPIRIN
     Indication: URETHRAL STENT INSERTION
     Route: 048
  3. LISINOPRIL. [Concomitant]
     Active Substance: LISINOPRIL
     Indication: BLOOD PRESSURE ABNORMAL
     Route: 048
  4. TERAZOSIN [Concomitant]
     Active Substance: TERAZOSIN HYDROCHLORIDE
     Indication: PROSTATIC DISORDER
     Route: 065
  5. TAMSULOSIN [Concomitant]
     Active Substance: TAMSULOSIN
     Indication: PROSTATIC DISORDER
     Route: 065
  6. HYDROCHLOROTHIAZIDE. [Concomitant]
     Active Substance: HYDROCHLOROTHIAZIDE
     Indication: BLOOD PRESSURE ABNORMAL
     Route: 065

REACTIONS (5)
  - Dry throat [Unknown]
  - Product use in unapproved indication [Unknown]
  - Dysphonia [Unknown]
  - Chronic obstructive pulmonary disease [Unknown]
  - Multiple allergies [Unknown]
